FAERS Safety Report 21527904 (Version 2)
Quarter: 2022Q4

REPORT INFORMATION
  Report Type: Spontaneous
  Country: JP (occurrence: JP)
  Receive Date: 20221031
  Receipt Date: 20221124
  Transmission Date: 20230113
  Serious: Yes (Other)
  Sender: FDA-Public Use
  Company Number: JP-ASTELLAS-2022JP015713

PATIENT
  Sex: Male

DRUGS (1)
  1. PADCEV [Suspect]
     Active Substance: ENFORTUMAB VEDOTIN-EJFV
     Indication: Ureteric cancer metastatic
     Dosage: UNK UNK, ONCE A WEEK, 3-WEEKS TREATMENT AND 1-WEEK REST
     Route: 065
     Dates: start: 20220222, end: 20220816

REACTIONS (1)
  - Urinary bladder sarcoma [Not Recovered/Not Resolved]

NARRATIVE: CASE EVENT DATE: 20220816
